FAERS Safety Report 4394968-X (Version None)
Quarter: 2004Q3

REPORT INFORMATION
  Report Type: 
  Country: None (occurrence: None)
  Receive Date: 20040706
  Receipt Date: 20040622
  Transmission Date: 20050211
  Serious: No
  Sender: FDA-Public Use
  Company Number: 04H-087-0264711-00

PATIENT
  Sex: 0

DRUGS (4)
  1. LEUCOVORIN CALCIUM [Suspect]
     Indication: CHEMOTHERAPY
     Dosage: 25 MG, ONCE, INTRAVENOUS
     Route: 042
  2. IRINOTECAN [Suspect]
     Indication: CHEMOTHERAPY
     Dosage: 100 MG/M2, ONCE, INTRAVENOUS ( DAY 1, 8, 15 - )
     Route: 042
  3. FLUOROURACIL [Suspect]
     Indication: CHEMOTHERAPY
     Dosage: 500 MG/M2, ONCE, INTRAVEOUS  (DAY 1, 8, 15  -    )
     Route: 042
  4. SODIUM CHLORIDE INJ [Concomitant]

REACTIONS (2)
  - HAEMATOTOXICITY [None]
  - NEUTROPENIA [None]
